FAERS Safety Report 10287053 (Version 2)
Quarter: 2014Q3

REPORT INFORMATION
  Report Type: Report from Study
  Country: US (occurrence: US)
  Receive Date: 20140709
  Receipt Date: 20140709
  Transmission Date: 20150326
  Serious: Yes (Hospitalization)
  Sender: FDA-Public Use
  Company Number: US-SA-2014SA078597

PATIENT
  Age: 69 Year
  Sex: Male

DRUGS (1)
  1. AUBAGIO [Suspect]
     Active Substance: TERIFLUNOMIDE
     Indication: MULTIPLE SCLEROSIS
     Route: 048
     Dates: start: 20140530, end: 20140621

REACTIONS (10)
  - Hyperhidrosis [Not Recovered/Not Resolved]
  - Dysphonia [Unknown]
  - Headache [Not Recovered/Not Resolved]
  - Cystitis [Recovering/Resolving]
  - Nausea [Recovered/Resolved]
  - Muscular weakness [Unknown]
  - Vomiting [Recovered/Resolved]
  - Feeling abnormal [Unknown]
  - Fall [Unknown]
  - Nervousness [Not Recovered/Not Resolved]
